FAERS Safety Report 7709224-9 (Version None)
Quarter: 2011Q3

REPORT INFORMATION
  Report Type: 
  Country: None (occurrence: None)
  Receive Date: 20110825
  Receipt Date: 20110817
  Transmission Date: 20111222
  Serious: Yes (Hospitalization)
  Sender: FDA-Public Use
  Company Number: JP-ROCHE-798262

PATIENT
  Sex: Male

DRUGS (4)
  1. AVASTIN [Suspect]
     Indication: LUNG ADENOCARCINOMA METASTATIC
     Route: 042
     Dates: start: 20110801, end: 20110801
  2. CARBOPLATIN [Concomitant]
     Dosage: DOSAGE IS UNCERTAIN
     Route: 041
     Dates: end: 20110801
  3. MORPHINE HCL ELIXIR [Concomitant]
     Dosage: DRUG: MORPHINE HYDROCHLORIDE HYDRATE(MORPHINE HYDROCHLORIDE HYDRATE); DOSAGE IS UNCERTAIN
     Route: 065
  4. ALIMTA [Concomitant]
     Dosage: DRUG:ALIMTA(PEMETREXED SODIUM HYDRATE); DOSAGE IS UNCERTAIN
     Route: 041
     Dates: end: 20110801

REACTIONS (1)
  - CHOLECYSTITIS [None]
